FAERS Safety Report 11676724 (Version 1)
Quarter: 2015Q4

REPORT INFORMATION
  Report Type: Spontaneous
  Country: US (occurrence: US)
  Receive Date: 20151027
  Receipt Date: 20151027
  Transmission Date: 20160304
  Serious: No
  Sender: FDA-Public Use
  Company Number: US-ELI_LILLY_AND_COMPANY-US201009008235

PATIENT
  Sex: Male

DRUGS (2)
  1. FORTEO [Suspect]
     Active Substance: TERIPARATIDE
     Dosage: 20 UG, DAILY (1/D)
     Dates: start: 20090919
  2. VACCINES [Concomitant]
     Active Substance: UNSPECIFIED INGREDIENT
     Indication: INFLUENZA
     Dosage: UNK, UNKNOWN
     Dates: start: 20100923

REACTIONS (1)
  - Injection site erythema [Recovered/Resolved]
